FAERS Safety Report 24022851 (Version 4)
Quarter: 2024Q3

REPORT INFORMATION
  Report Type: Spontaneous
  Country: IN (occurrence: IN)
  Receive Date: 20240627
  Receipt Date: 20240710
  Transmission Date: 20241017
  Serious: No
  Sender: ROCHE
  Company Number: IN-ROCHE-3520516

PATIENT
  Age: 74 Year
  Sex: Male

DRUGS (6)
  1. VABYSMO [Suspect]
     Active Substance: FARICIMAB\FARICIMAB-SVOA
     Indication: Dry age-related macular degeneration
     Route: 050
     Dates: start: 20240229
  2. VABYSMO [Suspect]
     Active Substance: FARICIMAB\FARICIMAB-SVOA
     Indication: Choroidal neovascularisation
  3. XALATAN [Concomitant]
     Active Substance: LATANOPROST
     Dosage: ONE DROP ONCE A DAY IN BOTH EYES
     Route: 047
     Dates: start: 20240226
  4. COMBIGAN [Concomitant]
     Active Substance: BRIMONIDINE TARTRATE\TIMOLOL MALEATE
     Dosage: ONE DROP TWO TIMES A DAY IN BOTH EYES
     Route: 047
     Dates: start: 20240226
  5. REFRESH TEARS [Concomitant]
     Active Substance: CARBOXYMETHYLCELLULOSE SODIUM
     Dosage: ONE DROP FOUR TIMES A DAY FOR 6 MONTHS IN BOTH EYES
     Route: 047
     Dates: start: 20240226
  6. ISOXSUPRINE HYDROCHLORIDE [Concomitant]
     Active Substance: ISOXSUPRINE HYDROCHLORIDE
     Dosage: ONE TABLET TWO TIMES A DAY FOR 1 MONTH
     Route: 048
     Dates: start: 20240226

REACTIONS (2)
  - Off label use [Unknown]
  - No adverse event [Unknown]

NARRATIVE: CASE EVENT DATE: 20240229
